FAERS Safety Report 18876925 (Version 1)
Quarter: 2021Q1

REPORT INFORMATION
  Report Type: Report from Study
  Country: None (occurrence: US)
  Receive Date: 20210210
  Receipt Date: 20210210
  Transmission Date: 20210420
  Serious: Yes (Hospitalization)
  Sender: FDA-Public Use
  Company Number: US-ABBVIE-20K-163-3712725-00

PATIENT
  Age: 56 Year
  Sex: Male

DRUGS (1)
  1. VENCLEXTA [Suspect]
     Active Substance: VENETOCLAX
     Indication: ACUTE MYELOID LEUKAEMIA
     Route: 048
     Dates: start: 20201211

REACTIONS (5)
  - Latent tuberculosis [Unknown]
  - Nervous system disorder [Unknown]
  - Infection [Unknown]
  - Off label use [Unknown]
  - Lung disorder [Unknown]

NARRATIVE: CASE EVENT DATE: 202012
